FAERS Safety Report 4862974-4 (Version None)
Quarter: 2005Q4

REPORT INFORMATION
  Report Type: 
  Country: None (occurrence: None)
  Receive Date: 20051219
  Receipt Date: 20051208
  Transmission Date: 20060501
  Serious: Yes (Hospitalization)
  Sender: FDA-Public Use
  Company Number: 2005BI020383

PATIENT
  Age: 63 Year
  Sex: Female

DRUGS (13)
  1. AVONEX [Suspect]
     Indication: MULTIPLE SCLEROSIS
     Dosage: 30 UG; QW; IM
     Route: 030
  2. WELLBUTRIN [Concomitant]
  3. TRAZODONE [Concomitant]
  4. PREMARIN [Concomitant]
  5. ARICEPT [Concomitant]
  6. DETROL LA [Concomitant]
  7. BACLOFEN [Concomitant]
  8. VICODIN [Concomitant]
  9. NEURONTIN [Concomitant]
  10. PREDNISONE 50MG TAB [Concomitant]
  11. LEXAPRO [Concomitant]
  12. RITALIN LA [Concomitant]
  13. RITALIN [Concomitant]

REACTIONS (7)
  - EXOSTOSIS [None]
  - INTERVERTEBRAL DISC DISORDER [None]
  - INTERVERTEBRAL DISC PROTRUSION [None]
  - INTERVERTEBRAL DISC SPACE NARROWING [None]
  - NERVOUS SYSTEM DISORDER [None]
  - PAIN [None]
  - SPONDYLOLISTHESIS [None]
